FAERS Safety Report 12113700 (Version 2)
Quarter: 2016Q1

REPORT INFORMATION
  Report Type: Spontaneous
  Country: US (occurrence: US)
  Receive Date: 20160225
  Receipt Date: 20160303
  Transmission Date: 20160526
  Serious: Yes (Other)
  Sender: FDA-Public Use
  Company Number: US-AMGEN-USASP2016020295

PATIENT
  Age: 63 Year
  Sex: Male
  Weight: 94.33 kg

DRUGS (17)
  1. SUNITINIB [Concomitant]
     Active Substance: SUNITINIB
     Dosage: UNK
     Dates: end: 20130613
  2. TRAMADOLE [Concomitant]
     Indication: PAIN
     Dosage: 50 MG, UNK
     Route: 048
  3. RAMIPRIL. [Concomitant]
     Active Substance: RAMIPRIL
     Dosage: 2.5 MG, QD
     Route: 048
     Dates: start: 20150819
  4. FUROSEMIDE. [Concomitant]
     Active Substance: FUROSEMIDE
     Dosage: 40 MG, UNK
     Route: 048
     Dates: start: 20141117
  5. HUMULIN NOS [Concomitant]
     Active Substance: INSULIN HUMAN
     Dosage: UNK (BEFORE MEAL)
     Route: 058
  6. OMEPRAZOLE. [Concomitant]
     Active Substance: OMEPRAZOLE
     Dosage: 20 MG, QD
     Route: 048
     Dates: start: 20150604
  7. AXITINIB [Concomitant]
     Active Substance: AXITINIB
     Dosage: 3 MG, BID
     Dates: start: 20150711
  8. INLYTA [Suspect]
     Active Substance: AXITINIB
     Indication: PRODUCT USED FOR UNKNOWN INDICATION
     Dosage: 1 MG, BID (EVERY TWELVE WEEKS)
     Route: 048
     Dates: start: 20150623
  9. EVEROLIMUS [Concomitant]
     Active Substance: EVEROLIMUS
     Dosage: 05 MG, UNK
     Dates: start: 20130725, end: 20141002
  10. AMLODIPINE BESYLATE. [Concomitant]
     Active Substance: AMLODIPINE BESYLATE
     Dosage: 5 MG, QD
     Route: 048
  11. CALCIUM [Concomitant]
     Active Substance: CALCIUM
     Dosage: UNK UNK, BID
     Dates: start: 20130711
  12. CARVEDIOL [Concomitant]
     Active Substance: CARVEDILOL
     Dosage: 25 MG, BID
     Route: 048
     Dates: start: 20141117
  13. GABAPENTIN. [Concomitant]
     Active Substance: GABAPENTIN
     Dosage: 300 MG, QD (BED TIME)
     Route: 048
     Dates: start: 20150612
  14. TYLENOL [Concomitant]
     Active Substance: ACETAMINOPHEN
     Dosage: 500 MG, TID
     Route: 048
  15. XGEVA [Suspect]
     Active Substance: DENOSUMAB
     Indication: METASTASES TO BONE
     Dosage: UNK UNK, QMO
     Route: 065
  16. ATORVASTATIN CALCIUM. [Concomitant]
     Active Substance: ATORVASTATIN CALCIUM
     Dosage: 80 MG, QD
     Route: 048
     Dates: start: 20150804
  17. GLUTOSE [Concomitant]
     Active Substance: DEXTROSE
     Dosage: UNK

REACTIONS (44)
  - Blindness [Unknown]
  - Musculoskeletal chest pain [Unknown]
  - Headache [Unknown]
  - Diarrhoea [Unknown]
  - Quadrantanopia [Unknown]
  - Metastatic neoplasm [Unknown]
  - Aortic valve disease [Unknown]
  - Pleural effusion [Unknown]
  - Constipation [Unknown]
  - Renal cell carcinoma [Unknown]
  - Cardiac failure acute [Unknown]
  - Dyspepsia [Unknown]
  - Cardiomyopathy [Unknown]
  - Visual impairment [Unknown]
  - Bone cancer [Unknown]
  - Central nervous system lesion [Unknown]
  - Pain [Unknown]
  - Hypoglycaemia [Unknown]
  - Osteoarthritis [Unknown]
  - Abdominal discomfort [Unknown]
  - Dyslipidaemia [Unknown]
  - Nephropathy [Unknown]
  - Cough [Unknown]
  - Metastases to lung [Unknown]
  - Upper-airway cough syndrome [Unknown]
  - Fatigue [Unknown]
  - Balance disorder [Unknown]
  - Epistaxis [Unknown]
  - Fracture delayed union [Unknown]
  - Hypoacusis [Unknown]
  - Rash [Unknown]
  - Pruritus [Unknown]
  - Sleep disorder [Unknown]
  - Cardiac murmur [Unknown]
  - Arthralgia [Unknown]
  - Metastases to central nervous system [Unknown]
  - Cardiac failure congestive [Unknown]
  - Vision blurred [Unknown]
  - Diabetic mononeuropathy [Unknown]
  - Pain in extremity [Unknown]
  - Haemorrhagic diathesis [Unknown]
  - Gastrooesophageal reflux disease [Unknown]
  - Hypertension [Unknown]
  - Musculoskeletal pain [Unknown]

NARRATIVE: CASE EVENT DATE: 20160121
